FAERS Safety Report 11776100 (Version 2)
Quarter: 2017Q2

REPORT INFORMATION
  Report Type: Spontaneous
  Country: US (occurrence: US)
  Receive Date: 20151125
  Receipt Date: 20170414
  Transmission Date: 20170829
  Serious: No
  Sender: FDA-Public Use
  Company Number: US-JNJFOC-20151104519

PATIENT
  Sex: Male

DRUGS (4)
  1. RISPERDAL [Suspect]
     Active Substance: RISPERIDONE
     Indication: AGGRESSION
     Dosage: DOSE: 0.5MG, 1MG, 2MG, 2.5MG, 3MG, 4MG
     Route: 048
     Dates: start: 1999, end: 2009
  2. RISPERDAL [Suspect]
     Active Substance: RISPERIDONE
     Indication: POST-TRAUMATIC STRESS DISORDER
     Dosage: DOSE: 0.5MG, 1MG, 2MG, 2.5MG, 3MG, 4MG
     Route: 048
     Dates: start: 1999, end: 2009
  3. RISPERDAL [Suspect]
     Active Substance: RISPERIDONE
     Indication: BIPOLAR DISORDER
     Dosage: DOSE: 0.5MG, 1MG, 2MG, 2.5MG, 3MG, 4MG
     Route: 048
     Dates: start: 1999, end: 2009
  4. RISPERDAL [Suspect]
     Active Substance: RISPERIDONE
     Indication: SCHIZOAFFECTIVE DISORDER
     Dosage: DOSE: 0.5MG, 1MG, 2MG, 2.5MG, 3MG, 4MG
     Route: 048
     Dates: start: 1999, end: 2009

REACTIONS (2)
  - Abnormal weight gain [Unknown]
  - Gynaecomastia [Unknown]

NARRATIVE: CASE EVENT DATE: 2000
